FAERS Safety Report 9400293 (Version 1)
Quarter: 2013Q3

REPORT INFORMATION
  Report Type: Spontaneous
  Country: GB (occurrence: None)
  Receive Date: 20130702
  Receipt Date: 20130702
  Transmission Date: 20140515
  Serious: Yes (Death, Hospitalization)
  Sender: FDA-Public Use
  Company Number: GER/UKI/13/0030267

PATIENT
  Age: 62 Year
  Sex: Male
  Weight: 62.59 kg

DRUGS (7)
  1. CLOPIDOGREL [Suspect]
     Indication: PRODUCT USED FOR UNKNOWN INDICATION
  2. ASPIRIN (ACETYLSALICYLIC ACID) [Concomitant]
  3. ATORVASTATIN (ATORVASTATIN) [Concomitant]
  4. BISOPROLOL (BISOPROLOL) [Concomitant]
  5. IRBESARTAN (IRBESARTAN) [Concomitant]
  6. OMACOR (OMEGA-3 MARINE TRIGLYCERIDES) [Concomitant]
  7. TAMSULOSIN (TAMSULOSIN) [Concomitant]

REACTIONS (9)
  - Leukaemia [None]
  - Diarrhoea [None]
  - Platelet count decreased [None]
  - Contusion [None]
  - Nausea [None]
  - Pneumonia [None]
  - Rash [None]
  - Abdominal pain upper [None]
  - Weight decreased [None]
